FAERS Safety Report 6181793-2 (Version None)
Quarter: 2009Q2

REPORT INFORMATION
  Report Type: 
  Country: None (occurrence: None)
  Receive Date: 20090504
  Receipt Date: 20090421
  Transmission Date: 20091009
  Serious: Yes (Life-Threatening)
  Sender: FDA-Public Use
  Company Number: 2009AL002509

PATIENT
  Age: 26 Year
  Sex: Female

DRUGS (8)
  1. FEVERALL [Suspect]
     Dosage: 12 GR;
  2. IBUPROFEN TABLETS [Suspect]
     Dosage: 9.6 GM;
  3. CHAMPIX [Concomitant]
  4. ANADIN EXTRA [Concomitant]
  5. SALBUTAMOL [Concomitant]
  6. DIANETTE [Concomitant]
  7. BECLOMETHASONE DIPROPIONATE [Concomitant]
  8. YASMIN [Concomitant]

REACTIONS (5)
  - ABDOMINAL PAIN [None]
  - ALCOHOL USE [None]
  - GASTROINTESTINAL HAEMORRHAGE [None]
  - MULTIPLE DRUG OVERDOSE [None]
  - NAUSEA [None]
